FAERS Safety Report 16954109 (Version 2)
Quarter: 2020Q1

REPORT INFORMATION
  Report Type: Spontaneous
  Country: JP (occurrence: JP)
  Receive Date: 20191023
  Receipt Date: 20200116
  Transmission Date: 20200409
  Serious: Yes (Hospitalization, Other)
  Sender: FDA-Public Use
  Company Number: JP-SHIRE-JP201934686

PATIENT

DRUGS (3)
  1. FYCOMPA [Concomitant]
     Active Substance: PERAMPANEL
     Indication: PRODUCT USED FOR UNKNOWN INDICATION
     Route: 065
  2. PHENOBARBITAL. [Concomitant]
     Active Substance: PHENOBARBITAL
     Indication: PRODUCT USED FOR UNKNOWN INDICATION
     Route: 065
  3. VPRIV [Suspect]
     Active Substance: VELAGLUCERASE ALFA
     Indication: GAUCHER^S DISEASE
     Dosage: 60 INTERNATIONAL UNIT/KILOGRAM, 1X/2WKS
     Route: 042
     Dates: start: 201812

REACTIONS (5)
  - Respiratory syncytial virus infection [Recovered/Resolved]
  - Femoral neck fracture [Recovering/Resolving]
  - Urinary tract infection [Recovering/Resolving]
  - Pneumonia aspiration [Recovering/Resolving]
  - Femur fracture [Recovering/Resolving]

NARRATIVE: CASE EVENT DATE: 201904
